FAERS Safety Report 7135938-8 (Version None)
Quarter: 2010Q4

REPORT INFORMATION
  Report Type: 
  Country: None (occurrence: None)
  Receive Date: 20101204
  Receipt Date: 20091014
  Transmission Date: 20110411
  Serious: Yes (Other)
  Sender: FDA-Public Use
  Company Number: US-BAYER-201042098NA

PATIENT

DRUGS (1)
  1. TRASYLOL [Suspect]

REACTIONS (12)
  - ANHEDONIA [None]
  - ANXIETY [None]
  - DEPRESSION [None]
  - DISABILITY [None]
  - EMOTIONAL DISTRESS [None]
  - FEAR [None]
  - FEAR OF DEATH [None]
  - MULTI-ORGAN FAILURE [None]
  - MULTIPLE INJURIES [None]
  - NERVOUSNESS [None]
  - PAIN [None]
  - RENAL FAILURE [None]
